FAERS Safety Report 5636781-9 (Version None)
Quarter: 2008Q1

REPORT INFORMATION
  Report Type: 
  Country: None (occurrence: None)
  Receive Date: 20080225
  Receipt Date: 20071128
  Transmission Date: 20080703
  Serious: Yes (Hospitalization)
  Sender: FDA-Public Use
  Company Number: JP-NOVOPROD-269888

PATIENT
  Age: 67 Year
  Sex: Female

DRUGS (1)
  1. NOVOLIN R [Suspect]
     Indication: DRUG USE FOR UNKNOWN INDICATION
     Dosage: 150 IU, QD
     Route: 058

REACTIONS (3)
  - BRAIN OEDEMA [None]
  - HYPOGLYCAEMIC COMA [None]
  - INTENTIONAL OVERDOSE [None]
